FAERS Safety Report 15035004 (Version 1)
Quarter: 2018Q2

REPORT INFORMATION
  Report Type: Spontaneous
  Country: IT (occurrence: IT)
  Receive Date: 20180620
  Receipt Date: 20180620
  Transmission Date: 20180711
  Serious: Yes (Other)
  Sender: FDA-Public Use
  Company Number: IT-AUROBINDO-AUR-APL-2018-032154

PATIENT
  Age: 47 Year
  Sex: Male

DRUGS (2)
  1. NIMESULIDE [Suspect]
     Active Substance: NIMESULIDE
     Indication: TOOTH ABSCESS
     Dosage: 100 MILLIGRAM, AS NECESARY
     Route: 048
  2. AMOXICILLIN+CLAVULANIC ACID [Suspect]
     Active Substance: AMOXICILLIN\CLAVULANIC ACID
     Indication: TOOTH ABSCESS
     Dosage: 1 DOSAGE FORM, IN TOTAL
     Route: 048

REACTIONS (6)
  - Urticaria [Recovering/Resolving]
  - Pruritus generalised [Recovering/Resolving]
  - Hypokalaemia [Recovering/Resolving]
  - Hypersensitivity [Recovering/Resolving]
  - Flushing [Recovering/Resolving]
  - Rash [Recovering/Resolving]

NARRATIVE: CASE EVENT DATE: 20180503
